FAERS Safety Report 4769808-7 (Version None)
Quarter: 2005Q3

REPORT INFORMATION
  Report Type: 
  Country: None (occurrence: None)
  Receive Date: 20050907
  Receipt Date: 20050621
  Transmission Date: 20060218
  Serious: Yes (Other)
  Sender: FDA-Public Use
  Company Number: HQWYE632623JUN05

PATIENT
  Age: 10 Year
  Sex: Male
  Weight: 36.32 kg

DRUGS (1)
  1. DIMETAPP TAB [Suspect]
     Indication: HYPERSENSITIVITY
     Dosage: 1 TABLET 1X PER 1 DAY, ORAL
     Route: 048
     Dates: start: 20050501, end: 20050617

REACTIONS (2)
  - TIC [None]
  - TREMOR [None]
